FAERS Safety Report 7589255-2 (Version None)
Quarter: 2011Q2

REPORT INFORMATION
  Report Type: 
  Country: None (occurrence: None)
  Receive Date: 20110603
  Receipt Date: 20110127
  Transmission Date: 20111010
  Serious: No
  Sender: FDA-Public Use
  Company Number: 2011SP004143

PATIENT
  Age: 46 Year
  Sex: Male

DRUGS (2)
  1. SAPHRIS [Suspect]
     Indication: SCHIZOAFFECTIVE DISORDER
     Dosage: 10 MG;QD;PO
     Route: 048
  2. SEROQUEL [Concomitant]

REACTIONS (2)
  - FLAT AFFECT [None]
  - INCORRECT ROUTE OF DRUG ADMINISTRATION [None]
